FAERS Safety Report 9196364 (Version 2)
Quarter: 2013Q2

REPORT INFORMATION
  Report Type: Spontaneous
  Country: CL (occurrence: CL)
  Receive Date: 20130328
  Receipt Date: 20130403
  Transmission Date: 20140414
  Serious: Yes (Death)
  Sender: FDA-Public Use
  Company Number: CL-TEVA-393987ISR

PATIENT
  Age: 1 Day
  Sex: Male
  Weight: .89 kg

DRUGS (10)
  1. METHYLDOPA [Suspect]
     Route: 065
  2. AZATHIOPRINE [Concomitant]
     Route: 065
  3. PROGESTERONE [Concomitant]
     Route: 065
  4. METHYLPREDNISOLONE [Concomitant]
     Route: 065
  5. HALOTHANE [Concomitant]
     Route: 065
  6. BUPIVACAINE [Concomitant]
     Route: 065
  7. PREDNISONE [Concomitant]
     Route: 065
  8. CEFAZOLIN [Concomitant]
     Route: 065
  9. HYDRALAZINE [Concomitant]
     Route: 065
  10. FENOTEROL [Concomitant]
     Route: 065

REACTIONS (1)
  - Respiratory failure [Fatal]
